FAERS Safety Report 10780964 (Version 1)
Quarter: 2015Q1

REPORT INFORMATION
  Report Type: Spontaneous
  Country: US (occurrence: US)
  Receive Date: 20150210
  Receipt Date: 20150210
  Transmission Date: 20150721
  Serious: No
  Sender: FDA-Public Use
  Company Number: US-GLAXOSMITHKLINE-A1066252A

PATIENT

DRUGS (2)
  1. WALGREEN NICOTINE [Suspect]
     Active Substance: NICOTINE
     Indication: EX-TOBACCO USER
  2. CLONAZEPAM. [Concomitant]
     Active Substance: CLONAZEPAM

REACTIONS (5)
  - Chest pain [Not Recovered/Not Resolved]
  - Insomnia [Not Recovered/Not Resolved]
  - Panic attack [Not Recovered/Not Resolved]
  - Idiosyncratic drug reaction [Not Recovered/Not Resolved]
  - Chest discomfort [Not Recovered/Not Resolved]
